FAERS Safety Report 9790842 (Version 1)
Quarter: 2013Q4

REPORT INFORMATION
  Report Type: Spontaneous
  Country: US (occurrence: US)
  Receive Date: 20131231
  Receipt Date: 20131231
  Transmission Date: 20140711
  Serious: No
  Sender: FDA-Public Use
  Company Number: US-PFIZER INC-2013370821

PATIENT
  Age: 54 Year
  Sex: Male

DRUGS (6)
  1. LIPITOR [Suspect]
     Dosage: UNK
     Dates: start: 20070918
  2. CRESTOR [Suspect]
     Dosage: UNK
     Dates: start: 20091014
  3. LESCOL [Suspect]
     Dosage: UNK
     Dates: start: 20070918
  4. PRAVACHOL [Suspect]
     Dosage: UNK
     Dates: start: 20070918
  5. ZETIA [Suspect]
     Dosage: UNK
     Dates: start: 20091014
  6. VITAMIN K [Suspect]
     Dosage: UNK
     Dates: start: 20070918

REACTIONS (2)
  - Drug hypersensitivity [Unknown]
  - Myalgia [Unknown]
